FAERS Safety Report 4378098-9 (Version None)
Quarter: 2004Q2

REPORT INFORMATION
  Report Type: 
  Country: None (occurrence: None)
  Receive Date: 20040616
  Receipt Date: 20040325
  Transmission Date: 20050107
  Serious: Yes (Disabling)
  Sender: FDA-Public Use
  Company Number: PHNR2004AU00821

PATIENT
  Age: 78 Year
  Sex: Male

DRUGS (3)
  1. LAMISIL [Suspect]
     Indication: ONYCHOMYCOSIS
     Dosage: 250 MG, QD
     Route: 048
     Dates: start: 20040322
  2. ANTIHYPERTENSIVES [Concomitant]
  3. EYE DROPS [Concomitant]

REACTIONS (1)
  - VISION BLURRED [None]
